FAERS Safety Report 18182697 (Version 1)
Quarter: 2020Q3

REPORT INFORMATION
  Report Type: Report from Study
  Country: None (occurrence: US)
  Receive Date: 20200821
  Receipt Date: 20200821
  Transmission Date: 20201103
  Serious: No
  Sender: FDA-Public Use
  Company Number: US-ABBVIE-20P-163-3528637-00

PATIENT
  Age: 40 Year
  Sex: Female
  Weight: 97.2 kg

DRUGS (13)
  1. ELAGOLIX/ESTRADIOL/NORETHINDRONE ACETATE [Suspect]
     Active Substance: ELAGOLIX SODIUM\ESTRADIOL\NORETHINDRONE
     Indication: UTERINE LEIOMYOMA
     Dosage: ELAGOLIX 300 MG, ESTRADIOL/NORETHINDRONE 1.0MG/0.5MG
     Route: 048
     Dates: start: 20190626
  2. IBUPROFEN. [Concomitant]
     Active Substance: IBUPROFEN
     Indication: BACK PAIN
     Route: 048
     Dates: start: 2017
  3. DOCUSATE SODIUM. [Concomitant]
     Active Substance: DOCUSATE SODIUM
     Indication: FAECES HARD
     Route: 048
     Dates: start: 20180620
  4. VITAMIN D [Concomitant]
     Active Substance: VITAMIN D NOS
     Indication: VITAMIN D DECREASED
     Route: 048
     Dates: start: 20180720
  5. AMLODIPINE BESYLATE. [Concomitant]
     Active Substance: AMLODIPINE BESYLATE
     Indication: HYPERTENSION
     Route: 048
     Dates: start: 20190816
  6. ELAGOLIX [Suspect]
     Active Substance: ELAGOLIX
     Indication: UTERINE LEIOMYOMA
     Dosage: PM DOSE
     Route: 048
     Dates: start: 20180725, end: 20190625
  7. RANITIDINE. [Concomitant]
     Active Substance: RANITIDINE
     Indication: GASTROOESOPHAGEAL REFLUX DISEASE
     Route: 048
     Dates: start: 2013
  8. ELAGOLIX/ESTRADIOL/NORETHINDRONE ACETATE [Suspect]
     Active Substance: ELAGOLIX SODIUM\ESTRADIOL\NORETHINDRONE
     Indication: UTERINE LEIOMYOMA
     Dosage: ELAGOLIX 300MG, ESTRADIOL/NORETHINDRONE 1.0MG/0.5MG
     Route: 048
     Dates: start: 20180725, end: 20190625
  9. FERROUS SULFATE. [Concomitant]
     Active Substance: FERROUS SULFATE
     Indication: BLOOD IRON DECREASED
     Route: 048
     Dates: start: 20190115
  10. DOCUSATE SODIUM. [Concomitant]
     Active Substance: DOCUSATE SODIUM
     Indication: MINERAL SUPPLEMENTATION
  11. ELAGOLIX [Suspect]
     Active Substance: ELAGOLIX
     Indication: UTERINE LEIOMYOMA
     Dosage: PM DOSE
     Route: 048
     Dates: start: 20190626
  12. HCZ [Concomitant]
     Indication: HYPERTENSION
     Route: 048
     Dates: start: 1998
  13. MOTRIN [Concomitant]
     Active Substance: IBUPROFEN
     Indication: BIOPSY ENDOMETRIUM
     Dates: start: 20190626

REACTIONS (1)
  - Alopecia [Not Recovered/Not Resolved]

NARRATIVE: CASE EVENT DATE: 20200601
